FAERS Safety Report 20201538 (Version 1)
Quarter: 2021Q4

REPORT INFORMATION
  Report Type: Report from Study
  Country: NL (occurrence: NL)
  Receive Date: 20211217
  Receipt Date: 20211217
  Transmission Date: 20220303
  Serious: Yes (Other)
  Sender: FDA-Public Use
  Company Number: NL-ABBVIE-21K-114-4153349-00

PATIENT
  Sex: Female

DRUGS (11)
  1. AZACITIDINE [Suspect]
     Active Substance: AZACITIDINE
     Indication: Product used for unknown indication
     Dosage: 75 MILLIGRAM/SQ. METER, START DATE: 23-JUN-2021
     Route: 065
     Dates: end: 2021
  2. AZACITIDINE [Suspect]
     Active Substance: AZACITIDINE
     Dosage: 75 MILLIGRAM/SQ. METER, START DATE: 26-JUL-2021
     Route: 065
     Dates: end: 2021
  3. AZACITIDINE [Suspect]
     Active Substance: AZACITIDINE
     Dosage: 75 MILLIGRAM/SQ. METER, START DATE: 30-AUG-2021
     Route: 065
     Dates: end: 2021
  4. AZACITIDINE [Suspect]
     Active Substance: AZACITIDINE
     Dosage: 75 MILLIGRAM/SQ. METER, START DATE: 26-APR-2021
     Route: 065
     Dates: end: 2021
  5. AZACITIDINE [Suspect]
     Active Substance: AZACITIDINE
     Dosage: 75 MILLIGRAM/SQ. METER, START DATE: 25-MAY-2021
     Route: 065
     Dates: end: 2021
  6. VENETOCLAX [Suspect]
     Active Substance: VENETOCLAX
     Indication: Acute myeloid leukaemia
     Dosage: UNK, START DATE: 23-JUN-2021
     Route: 048
     Dates: end: 2021
  7. VENETOCLAX [Suspect]
     Active Substance: VENETOCLAX
     Dosage: 100 MILLIGRAM, QD, START DATE: 26-APR-2021
     Route: 048
     Dates: end: 2021
  8. VENETOCLAX [Suspect]
     Active Substance: VENETOCLAX
     Dosage: UNK, START DATE: 26-JUL-2021
     Route: 048
     Dates: end: 2021
  9. VENETOCLAX [Suspect]
     Active Substance: VENETOCLAX
     Dosage: 400 MILLIGRAM, QD, START DATE: 25-MAY-2021
     Route: 048
     Dates: end: 2021
  10. VENETOCLAX [Suspect]
     Active Substance: VENETOCLAX
     Dosage: 400 MILLIGRAM, QD, START DATE: ??-???-2021
     Route: 048
     Dates: end: 2021
  11. VENETOCLAX [Suspect]
     Active Substance: VENETOCLAX
     Dosage: 200 MILLIGRAM, QD, START DATE: ??-???-2021
     Route: 048
     Dates: end: 2021

REACTIONS (3)
  - Cytopenia [Not Recovered/Not Resolved]
  - Acute myeloid leukaemia [Not Recovered/Not Resolved]
  - Off label use [Recovered/Resolved]

NARRATIVE: CASE EVENT DATE: 20210101
